FAERS Safety Report 5644284-0 (Version None)
Quarter: 2008Q1

REPORT INFORMATION
  Report Type: 
  Country: None (occurrence: None)
  Receive Date: 20080229
  Receipt Date: 20080227
  Transmission Date: 20080703
  Serious: Yes (Hospitalization, Other)
  Sender: FDA-Public Use
  Company Number: PHNU2008DE01140

PATIENT
  Sex: Male

DRUGS (3)
  1. ASPIRIN [Concomitant]
  2. BETA BLOCKING AGENTS [Concomitant]
  3. DIOVAN [Suspect]
     Indication: HYPERTENSION
     Dosage: 1 DF, QD
     Dates: start: 20060101

REACTIONS (3)
  - BIOPSY BRONCHUS [None]
  - COUGH [None]
  - PNEUMONIA [None]
